FAERS Safety Report 5270500-3 (Version None)
Quarter: 2007Q1

REPORT INFORMATION
  Report Type: 
  Country: None (occurrence: None)
  Receive Date: 20070315
  Receipt Date: 20070301
  Transmission Date: 20070707
  Serious: Yes (Other)
  Sender: FDA-Public Use
  Company Number: 2007US-06164

PATIENT
  Age: 35 Year
  Sex: Female

DRUGS (1)
  1. ISOTRETINOIN [Suspect]
     Indication: ACNE
     Dosage: 40 MG, QD, ORAL
     Route: 048
     Dates: start: 20070129, end: 20070226

REACTIONS (2)
  - BACK PAIN [None]
  - OSTEOARTHRITIS [None]
